FAERS Safety Report 4398532-8 (Version None)
Quarter: 2004Q3

REPORT INFORMATION
  Report Type: 
  Country: None (occurrence: None)
  Receive Date: 20040712
  Receipt Date: 20040630
  Transmission Date: 20050211
  Serious: Yes (Other)
  Sender: FDA-Public Use
  Company Number: 2004-DE-03618GD

PATIENT

DRUGS (4)
  1. CYCLOPHOSPHAMIDE [Suspect]
     Indication: HAEMATOPOIETIC STEM CELL MOBILISATION
     Dosage: 4 G/ME2 (4 DIVIDED DOSES DURING 24  HOURS)
  2. DEXAMETHASONE [Suspect]
     Indication: MULTIPLE MYELOMA
     Dosage: 96 MG (8 HOURLY), PO
     Route: 048
  3. VINCRISTINE [Suspect]
     Indication: MULTIPLE MYELOMA
     Dosage: 0.4 MG (CONTINUOUS INFUSION), IV
     Route: 042
  4. DOXORUBICIN HCL [Suspect]
     Indication: MULTIPLE MYELOMA
     Dosage: 9 MG/ME2 (CONTINUOUS INFUSION), IV
     Route: 042

REACTIONS (1)
  - VENOOCCLUSIVE DISEASE [None]
